FAERS Safety Report 19283635 (Version 2)
Quarter: 2021Q2

REPORT INFORMATION
  Report Type: Spontaneous
  Country: CH (occurrence: CH)
  Receive Date: 20210521
  Receipt Date: 20210622
  Transmission Date: 20210717
  Serious: Yes (Death)
  Sender: FDA-Public Use
  Company Number: CH-EXELIXIS-CABO-21039387

PATIENT
  Sex: Female

DRUGS (1)
  1. CABOMETYX [Suspect]
     Active Substance: CABOZANTINIB S-MALATE
     Indication: HEPATOCELLULAR CARCINOMA
     Dosage: 20MG/40MG, QD
     Route: 048
     Dates: start: 20210421, end: 20210422

REACTIONS (2)
  - Off label use [Unknown]
  - Malignant neoplasm progression [Fatal]
